FAERS Safety Report 9936676 (Version 1)
Quarter: 2014Q1

REPORT INFORMATION
  Report Type: Spontaneous
  Country: US (occurrence: US)
  Receive Date: 20140228
  Receipt Date: 20140228
  Transmission Date: 20141002
  Serious: Yes (Hospitalization)
  Sender: FDA-Public Use
  Company Number: US-SANOFI-AVENTIS-2013SA088938

PATIENT
  Sex: Female

DRUGS (3)
  1. DIABETA [Suspect]
     Route: 065
  2. ACTOS [Concomitant]
  3. JANUVIA [Concomitant]

REACTIONS (7)
  - Blood glucose decreased [Unknown]
  - Hypoglycaemic coma [Unknown]
  - Vitamin B12 decreased [Unknown]
  - Anaemia [Unknown]
  - Balance disorder [Unknown]
  - Weight increased [Unknown]
  - Arthropathy [Unknown]
